FAERS Safety Report 4727982-2 (Version None)
Quarter: 2005Q3

REPORT INFORMATION
  Report Type: 
  Country: None (occurrence: None)
  Receive Date: 20050719
  Receipt Date: 20050705
  Transmission Date: 20060218
  Serious: Yes (Death)
  Sender: FDA-Public Use
  Company Number: MPS1-10398

PATIENT
  Sex: Male
  Weight: 18 kg

DRUGS (1)
  1. ALDURAZYME [Suspect]
     Indication: MUCOPOLYSACCHARIDOSIS I
     Dosage: 1500 UNITS QWK IV
     Route: 042
     Dates: start: 20031212, end: 20050623

REACTIONS (1)
  - SLEEP APNOEA SYNDROME [None]
